FAERS Safety Report 14973548 (Version 1)
Quarter: 2018Q2

REPORT INFORMATION
  Report Type: Spontaneous
  Country: US (occurrence: US)
  Receive Date: 20180514
  Receipt Date: 20180514
  Transmission Date: 20180711
  Serious: Yes (Other)
  Sender: FDA-Public Use
  Company Number: None

PATIENT
  Age: 76 Year
  Sex: Female
  Weight: 86.4 kg

DRUGS (1)
  1. RECLAST [Suspect]
     Active Substance: ZOLEDRONIC ACID
     Indication: OSTEOPOROSIS
     Dosage: ?          QUANTITY:1 INJECTION(S);OTHER FREQUENCY:ONCE YEARLY;?
     Route: 042
     Dates: start: 20180510, end: 20180510

REACTIONS (13)
  - Pyrexia [None]
  - Blood urine present [None]
  - Chills [None]
  - Depression [None]
  - Arthralgia [None]
  - Mental impairment [None]
  - Pain [None]
  - Diarrhoea [None]
  - Decreased appetite [None]
  - Asthenia [None]
  - Muscle spasms [None]
  - Constipation [None]
  - Dyspnoea [None]

NARRATIVE: CASE EVENT DATE: 20180511
